FAERS Safety Report 5383570-9 (Version None)
Quarter: 2007Q3

REPORT INFORMATION
  Report Type: 
  Country: None (occurrence: None)
  Receive Date: 20070706
  Receipt Date: 20070625
  Transmission Date: 20080115
  Serious: Yes (Other)
  Sender: FDA-Public Use
  Company Number: CHNY2007DE02343

PATIENT
  Age: 11 Year
  Sex: Female

DRUGS (1)
  1. SCOPODERM TTS (NCH) (HYOSCINE HYDROBROMIDE) TRANS-THERAPEUTIC-SYSTEM [Suspect]
     Indication: SALIVARY HYPERSECRETION
     Dosage: TRANSDERMAL
     Route: 062
     Dates: start: 20070601

REACTIONS (1)
  - EXCESSIVE EYE BLINKING [None]
